FAERS Safety Report 7480371-2 (Version None)
Quarter: 2011Q2

REPORT INFORMATION
  Report Type: 
  Country: None (occurrence: None)
  Receive Date: 20110504
  Receipt Date: 20110419
  Transmission Date: 20111010
  Serious: No
  Sender: FDA-Public Use
  Company Number: SPI201100100

PATIENT
  Age: 51 Year
  Sex: Male
  Weight: 76.2 kg

DRUGS (6)
  1. LACTULOSE [Concomitant]
  2. MIRALAX [Concomitant]
  3. LORTAB [Concomitant]
  4. AMBIEN [Concomitant]
  5. AMITIZA [Suspect]
     Indication: CONSTIPATION
     Dosage: 24 MCG, BID, ORAL
     Route: 048
     Dates: start: 20080101
  6. XANAX [Concomitant]

REACTIONS (7)
  - CHOKING [None]
  - DYSPHAGIA [None]
  - DRUG INEFFECTIVE [None]
  - HYPOAESTHESIA ORAL [None]
  - FOREIGN BODY [None]
  - DYSPNOEA [None]
  - WRONG TECHNIQUE IN DRUG USAGE PROCESS [None]
